FAERS Safety Report 22032407 (Version 3)
Quarter: 2023Q1

REPORT INFORMATION
  Report Type: Report from Study
  Country: BR (occurrence: BR)
  Receive Date: 20230224
  Receipt Date: 20230302
  Transmission Date: 20230418
  Serious: Yes (Disabling, Other)
  Sender: FDA-Public Use
  Company Number: BR-ABBVIE-4315910

PATIENT
  Age: 21 Year
  Sex: Female
  Weight: 80 kg

DRUGS (2)
  1. RINVOQ [Suspect]
     Active Substance: UPADACITINIB
     Indication: Dermatitis atopic
     Dosage: 2 TABLETS DAILY?15 MILLIGRAM
     Route: 048
     Dates: start: 202207, end: 20230217
  2. RINVOQ [Suspect]
     Active Substance: UPADACITINIB
     Indication: Dermatitis atopic
     Dosage: 15 MILLIGRAM
     Route: 048
     Dates: start: 20220630

REACTIONS (23)
  - Mobility decreased [Unknown]
  - Pruritus [Recovered/Resolved]
  - Hyperhidrosis [Unknown]
  - Wound [Not Recovered/Not Resolved]
  - Mass [Not Recovered/Not Resolved]
  - Swelling face [Unknown]
  - Nervousness [Not Recovered/Not Resolved]
  - Skin exfoliation [Not Recovered/Not Resolved]
  - Tremor [Not Recovered/Not Resolved]
  - Nasal congestion [Not Recovered/Not Resolved]
  - Intentional product misuse [Unknown]
  - Erythema [Not Recovered/Not Resolved]
  - Skin abrasion [Unknown]
  - Insomnia [Unknown]
  - Throat tightness [Unknown]
  - Behaviour disorder [Not Recovered/Not Resolved]
  - Burning sensation [Unknown]
  - Hypersensitivity [Unknown]
  - Pain [Unknown]
  - Unevaluable event [Unknown]
  - Condition aggravated [Unknown]
  - Pruritus [Unknown]
  - Emotional disorder [Unknown]

NARRATIVE: CASE EVENT DATE: 20230201
